FAERS Safety Report 22090422 (Version 1)
Quarter: 2023Q1

REPORT INFORMATION
  Report Type: Spontaneous
  Country: IL (occurrence: IL)
  Receive Date: 20230313
  Receipt Date: 20230313
  Transmission Date: 20230418
  Serious: Yes (Life-Threatening, Other)
  Sender: FDA-Public Use
  Company Number: IL-009507513-2303ISR003518

PATIENT
  Age: 47 Year
  Sex: Male

DRUGS (31)
  1. KEYTRUDA [Suspect]
     Active Substance: PEMBROLIZUMAB
  2. AVILAC [LACTULOSE] [Concomitant]
  3. BETACORTEN G [Concomitant]
  4. BEZAFIBRATE [Concomitant]
     Active Substance: BEZAFIBRATE
  5. CALCILESS [CALCIUM CARBONATE;COLECALCIFEROL;CYANOCOBALAMIN] [Concomitant]
  6. ENOXAPARIN SODIUM [Concomitant]
     Active Substance: ENOXAPARIN SODIUM
  7. CONTROLOC [Concomitant]
     Active Substance: PANTOPRAZOLE SODIUM
  8. DIPHENHYDRAMINE [Concomitant]
     Active Substance: DIPHENHYDRAMINE
  9. MORPHINE SULFATE [Concomitant]
     Active Substance: MORPHINE SULFATE
  10. EUTHYROX [Concomitant]
     Active Substance: LEVOTHYROXINE SODIUM
  11. FENTANYL TRANSDERMAL SYSTEM [Concomitant]
     Active Substance: FENTANYL
  12. GABAPENTIN [Concomitant]
     Active Substance: GABAPENTIN
  13. HYCOMYCIN [Concomitant]
  14. INSULIN LISPRO [Concomitant]
     Active Substance: INSULIN LISPRO
  15. BISACODYL [Concomitant]
     Active Substance: BISACODYL
  16. LORAZEPAM [Concomitant]
     Active Substance: LORAZEPAM
  17. LOSEC [Concomitant]
     Active Substance: OMEPRAZOLE
  18. POLYETHYLENE GLYCOL 3350\POTASSIUM CHLORIDE\SODIUM BICARBONATE\SODIUM [Concomitant]
     Active Substance: POLYETHYLENE GLYCOL 3350\POTASSIUM CHLORIDE\SODIUM BICARBONATE\SODIUM CHLORIDE
  19. METHADONE [Concomitant]
     Active Substance: METHADONE HYDROCHLORIDE
  20. MIRO [MIRTAZAPINE] [Concomitant]
  21. MODAL [Concomitant]
  22. MORPHINE [Concomitant]
     Active Substance: MORPHINE
  23. NEOTIGASON [Concomitant]
     Active Substance: ACITRETIN
  24. NORMALAX [MACROGOL 3350] [Concomitant]
  25. METAMIZOLE [Concomitant]
     Active Substance: METAMIZOLE
  26. PREDNISONE [Concomitant]
     Active Substance: PREDNISONE
  27. RAPAMUNE [Concomitant]
     Active Substance: SIROLIMUS
  28. STATOR [ATORVASTATIN CALCIUM] [Concomitant]
  29. TRIDERM [CLOTRIMAZOLE] [Concomitant]
  30. URSODIOL [Concomitant]
     Active Substance: URSODIOL
  31. DICLOFENAC DIETHYLAMINE [Concomitant]
     Active Substance: DICLOFENAC DIETHYLAMINE

REACTIONS (3)
  - Autoimmune hepatitis [Unknown]
  - Hepatic enzyme increased [Unknown]
  - Blood bilirubin increased [Unknown]
